FAERS Safety Report 15187180 (Version 2)
Quarter: 2019Q1

REPORT INFORMATION
  Report Type: Report from Study
  Country: US (occurrence: US)
  Receive Date: 20180723
  Receipt Date: 20190130
  Transmission Date: 20190417
  Serious: No
  Sender: FDA-Public Use
  Company Number: US-EXELIXIS-CABO-18014125

PATIENT
  Sex: Male

DRUGS (3)
  1. CABOMETYX [Suspect]
     Active Substance: CABOZANTINIB S-MALATE
     Indication: RENAL CELL CARCINOMA
     Dosage: 60 MG, UNK
     Dates: start: 201802
  2. CABOMETYX [Suspect]
     Active Substance: CABOZANTINIB S-MALATE
     Dosage: 40 MG, QD
     Dates: start: 20180519
  3. TESTOSTERON [Concomitant]
     Active Substance: TESTOSTERONE
     Dosage: UNK

REACTIONS (10)
  - Hypertension [Unknown]
  - Nausea [Unknown]
  - Dizziness [Unknown]
  - Cardiac flutter [Unknown]
  - Appetite disorder [Unknown]
  - Nasal dryness [Unknown]
  - Product dose omission [Unknown]
  - Hair colour changes [Unknown]
  - Oral pain [Not Recovered/Not Resolved]
  - Diarrhoea [Not Recovered/Not Resolved]
